FAERS Safety Report 6210371-1 (Version None)
Quarter: 2009Q2

REPORT INFORMATION
  Report Type: 
  Country: None (occurrence: None)
  Receive Date: 20090601
  Receipt Date: 20090520
  Transmission Date: 20091009
  Serious: Yes (Disabling)
  Sender: FDA-Public Use
  Company Number: JP-PFIZER INC-2009213561

PATIENT
  Age: 85 Year

DRUGS (2)
  1. SILDENAFIL CITRATE [Suspect]
     Indication: PULMONARY HYPERTENSION
     Dosage: 60 MG, DAILY
     Route: 048
     Dates: start: 20090313, end: 20090501
  2. TRACLEER [Concomitant]
     Route: 048
     Dates: start: 20090413

REACTIONS (1)
  - HEPATIC FUNCTION ABNORMAL [None]
